FAERS Safety Report 23389619 (Version 3)
Quarter: 2024Q3

REPORT INFORMATION
  Report Type: Report from Study
  Country: US (occurrence: US)
  Receive Date: 20240111
  Receipt Date: 20240807
  Transmission Date: 20241017
  Serious: Yes (Disabling, Other)
  Sender: AMGEN
  Company Number: US-HORIZON THERAPEUTICS-HZN-2022-000947

PATIENT
  Age: 53 Year
  Sex: Male

DRUGS (9)
  1. TEPEZZA [Suspect]
     Active Substance: TEPROTUMUMAB-TRBW
     Indication: Endocrine ophthalmopathy
     Dosage: 950 MILLIGRAM, (FIRST INFUSION)
     Route: 042
     Dates: start: 20210604
  2. TEPEZZA [Suspect]
     Active Substance: TEPROTUMUMAB-TRBW
     Dosage: 1900 MILLIGRAM, (THIRD INFUSION)
     Route: 042
     Dates: start: 20210716
  3. TEPEZZA [Suspect]
     Active Substance: TEPROTUMUMAB-TRBW
     Dosage: 1900 MILLIGRAM, (FOURTH INFUSION)
     Route: 042
     Dates: start: 20210903
  4. TEPEZZA [Suspect]
     Active Substance: TEPROTUMUMAB-TRBW
     Dosage: 1900 MILLIGRAM, (FIFTH INFUSION)
     Route: 042
     Dates: start: 20210917
  5. TEPEZZA [Suspect]
     Active Substance: TEPROTUMUMAB-TRBW
     Dosage: 1900 MILLIGRAM,(SEVENTH INFUSION)
     Route: 042
     Dates: start: 20211011
  6. TEPEZZA [Suspect]
     Active Substance: TEPROTUMUMAB-TRBW
     Dosage: 1900 MILLIGRAM, (EIGHTH INFUSION)
     Route: 042
     Dates: start: 20211101, end: 20211101
  7. AMLODIPINE AN [Concomitant]
     Indication: Hypertension
     Dosage: UNK, QD
     Route: 048
  8. CYCLOBENZAPRINE [Concomitant]
     Active Substance: CYCLOBENZAPRINE
     Dosage: 1 DOSAGE FORM, TID (FOR 5 DAYS)
     Route: 048
  9. DICLOFENAC SODIUM [Concomitant]
     Active Substance: DICLOFENAC\DICLOFENAC SODIUM
     Dosage: 1 DOSAGE FORM, BID (FOR 15 DAYS)
     Route: 048

REACTIONS (16)
  - Disability [Not Recovered/Not Resolved]
  - Physical disability [Not Recovered/Not Resolved]
  - Injury [Not Recovered/Not Resolved]
  - Pain [Not Recovered/Not Resolved]
  - Anxiety [Not Recovered/Not Resolved]
  - Impaired quality of life [Not Recovered/Not Resolved]
  - Economic problem [Not Recovered/Not Resolved]
  - Concomitant disease aggravated [Not Recovered/Not Resolved]
  - Drug ineffective [Unknown]
  - Discomfort [Unknown]
  - Emotional distress [Unknown]
  - Muscle spasms [Unknown]
  - Tinnitus [Unknown]
  - Product quality issue [Unknown]
  - Strabismus [Unknown]
  - Periorbital oedema [Unknown]

NARRATIVE: CASE EVENT DATE: 20210801
